FAERS Safety Report 4624869-0 (Version None)
Quarter: 2005Q2

REPORT INFORMATION
  Report Type: 
  Country: None (occurrence: None)
  Receive Date: 20050325
  Receipt Date: 20050107
  Transmission Date: 20051028
  Serious: No
  Sender: FDA-Public Use
  Company Number: USA050187745

PATIENT
  Age: 66 Year
  Sex: Female
  Weight: 82 kg

DRUGS (2)
  1. FORTEO [Suspect]
     Indication: BACK PAIN
     Dosage: 20 UG/ 1 DAY
     Dates: start: 20040701
  2. FORTEO [Suspect]
     Indication: BONE DISORDER
     Dosage: 20 UG/ 1 DAY
     Dates: start: 20040701

REACTIONS (3)
  - ARTHROPATHY [None]
  - LIMB OPERATION [None]
  - MUSCULOSKELETAL STIFFNESS [None]
